FAERS Safety Report 10004120 (Version 1)
Quarter: 2014Q1

REPORT INFORMATION
  Report Type: Report from Study
  Country: PL (occurrence: PL)
  Receive Date: 20140312
  Receipt Date: 20140312
  Transmission Date: 20141002
  Serious: Yes (Hospitalization)
  Sender: FDA-Public Use
  Company Number: PHHO2014PL003565

PATIENT
  Sex: 0

DRUGS (7)
  1. AMN107 [Suspect]
     Indication: CHRONIC MYELOID LEUKAEMIA
     Dosage: 800 MG, BID
     Route: 048
     Dates: start: 20080731
  2. CLOPIDIX [Concomitant]
     Indication: PROPHYLAXIS
     Dosage: 75 MG, QD
     Dates: start: 20090220
  3. POLOCARD [Concomitant]
     Indication: PROPHYLAXIS
     Dosage: 75 MG, QD
     Dates: start: 20090216
  4. TRITACE [Concomitant]
     Indication: HYPERTENSION
     Dosage: 10 MG, QD
     Dates: start: 20140210
  5. NEDAL [Concomitant]
     Indication: HYPERTENSION
     Dosage: 5 MG, QD
     Dates: start: 20121220
  6. PRAVATOR [Concomitant]
     Indication: ARTERIOSCLEROSIS
     Dosage: 20 MG, QD
     Dates: start: 20130117
  7. DIAPREL [Concomitant]
     Indication: DIABETES MELLITUS
     Dosage: 60 MG, BID
     Dates: start: 20091214

REACTIONS (1)
  - Acute myocardial infarction [Recovered/Resolved]
